FAERS Safety Report 8059675-0 (Version None)
Quarter: 2012Q1

REPORT INFORMATION
  Report Type: 
  Country: None (occurrence: None)
  Receive Date: 20120120
  Receipt Date: 20120112
  Transmission Date: 20120608
  Serious: Yes (Hospitalization, Other)
  Sender: FDA-Public Use
  Company Number: PHHY2011DE109733

PATIENT
  Age: 76 Year
  Sex: Male

DRUGS (1)
  1. ZOLEDRONOC ACID [Suspect]
     Indication: OSTEOPOROSIS
     Dosage: 5 MG YEARLY
     Route: 042
     Dates: start: 20111122

REACTIONS (13)
  - DYSARTHRIA [None]
  - PYREXIA [None]
  - JOINT SWELLING [None]
  - PARAESTHESIA [None]
  - PAIN [None]
  - VOMITING [None]
  - BONE PAIN [None]
  - CHILLS [None]
  - MYALGIA [None]
  - TENSION [None]
  - NAUSEA [None]
  - DIARRHOEA [None]
  - ARTHRALGIA [None]
